FAERS Safety Report 17543728 (Version 2)
Quarter: 2020Q2

REPORT INFORMATION
  Report Type: Spontaneous
  Country: US (occurrence: US)
  Receive Date: 20200316
  Receipt Date: 20200618
  Transmission Date: 20200713
  Serious: No
  Sender: FDA-Public Use
  Company Number: US-TEVA-2020-US-1191402

PATIENT
  Age: 88 Year
  Sex: Female

DRUGS (4)
  1. MUPIROCIN. [Suspect]
     Active Substance: MUPIROCIN
     Indication: PROPHYLAXIS
     Dosage: APPLY THE MEDICATION TWICE A DAY
     Route: 065
     Dates: start: 20200212, end: 20200220
  2. PREDNISONE. [Concomitant]
     Active Substance: PREDNISONE
     Route: 065
  3. MUPIROCIN. [Suspect]
     Active Substance: MUPIROCIN
     Indication: WOUND INFECTION
     Dosage: ONCE A DAY
     Route: 065
  4. POTASSIUM [Concomitant]
     Active Substance: POTASSIUM
     Route: 065

REACTIONS (7)
  - Pain [Unknown]
  - Dizziness [Unknown]
  - Intentional product use issue [Unknown]
  - Chest pain [Recovered/Resolved]
  - Headache [Recovered/Resolved]
  - Dyspnoea [Recovered/Resolved]
  - Diarrhoea [Recovered/Resolved]

NARRATIVE: CASE EVENT DATE: 20200220
